FAERS Safety Report 13393962 (Version 1)
Quarter: 2017Q1

REPORT INFORMATION
  Report Type: Spontaneous
  Country: US (occurrence: US)
  Receive Date: 20170331
  Receipt Date: 20170331
  Transmission Date: 20170429
  Serious: Yes (Hospitalization)
  Sender: FDA-Public Use
  Company Number: US-IMPAX LABORATORIES, INC-2017-IPXL-00744

PATIENT
  Age: 34 Year
  Sex: Female

DRUGS (2)
  1. DOXYCYCLINE. [Suspect]
     Active Substance: DOXYCYCLINE
     Indication: LYME DISEASE
     Dosage: UNK
     Route: 065
  2. PREDNISONE. [Concomitant]
     Active Substance: PREDNISONE
     Indication: FACIAL PARALYSIS
     Dosage: UNK
     Route: 065

REACTIONS (8)
  - Facial paralysis [Unknown]
  - Lethargy [Unknown]
  - Vomiting [Unknown]
  - Thyroid mass [Unknown]
  - Nausea [Unknown]
  - Hypercalcaemia [Unknown]
  - Neurosarcoidosis [Unknown]
  - Headache [Unknown]
